FAERS Safety Report 4320517-8 (Version None)
Quarter: 2004Q1

REPORT INFORMATION
  Report Type: 
  Country: None (occurrence: None)
  Receive Date: 20040322
  Receipt Date: 20040312
  Transmission Date: 20041129
  Serious: Yes (Death)
  Sender: FDA-Public Use
  Company Number: 200411061FR

PATIENT
  Age: 38 Year
  Sex: Male

DRUGS (2)
  1. LOVENOX [Suspect]
     Indication: THROMBOSIS PROPHYLAXIS
     Route: 058
     Dates: start: 20040101, end: 20040301
  2. ANALGESIC LIQ [Concomitant]

REACTIONS (5)
  - CARDIAC ARREST [None]
  - CHEST PAIN [None]
  - DYSPNOEA [None]
  - PAIN IN EXTREMITY [None]
  - PULMONARY EMBOLISM [None]
